FAERS Safety Report 25529937 (Version 3)
Quarter: 2025Q3

REPORT INFORMATION
  Report Type: Spontaneous
  Country: US (occurrence: US)
  Receive Date: 20250708
  Receipt Date: 20250728
  Transmission Date: 20251021
  Serious: No
  Sender: BAYER HEALTHCARE PHARMACEUTICALS INC.
  Company Number: US-BAYER-2025A088249

PATIENT
  Age: 61 Year
  Sex: Female
  Weight: 88.435 kg

DRUGS (4)
  1. GADAVIST [Suspect]
     Active Substance: GADOBUTROL
     Indication: Neck pain
     Route: 042
     Dates: start: 20250604, end: 20250604
  2. GADAVIST [Suspect]
     Active Substance: GADOBUTROL
     Indication: Infection
  3. GADAVIST [Suspect]
     Active Substance: GADOBUTROL
     Indication: Surgery
  4. GADAVIST [Suspect]
     Active Substance: GADOBUTROL
     Indication: Magnetic resonance imaging neck

REACTIONS (2)
  - Skin abrasion [Recovered/Resolved]
  - Rash pruritic [Recovered/Resolved]

NARRATIVE: CASE EVENT DATE: 20250604
